FAERS Safety Report 18010511 (Version 2)
Quarter: 2020Q3

REPORT INFORMATION
  Report Type: Spontaneous
  Country: DE (occurrence: DE)
  Receive Date: 20200711
  Receipt Date: 20200717
  Transmission Date: 20201103
  Serious: Yes (Death, Hospitalization)
  Sender: FDA-Public Use
  Company Number: NVSC2020DE191563

PATIENT
  Sex: Female
  Weight: 92 kg

DRUGS (3)
  1. PEGFILGRASTIM [Suspect]
     Active Substance: PEGFILGRASTIM
     Indication: PRODUCT USED FOR UNKNOWN INDICATION
     Dosage: 6 MG (STRENGTH: 6 MG CYCLE 1)
     Route: 058
     Dates: start: 20200403
  2. PEGFILGRASTIM [Suspect]
     Active Substance: PEGFILGRASTIM
     Dosage: 6 MG (STRENGTH: 6 MG CYCLE 2)
     Route: 058
     Dates: start: 20200424
  3. PEGFILGRASTIM [Suspect]
     Active Substance: PEGFILGRASTIM
     Dosage: 6 MG (STRENGTH: 6 MG CYCLE 3)
     Route: 058
     Dates: start: 20200531

REACTIONS (3)
  - Pancytopenia [Unknown]
  - Disease progression [Fatal]
  - Urinary tract infection [Unknown]

NARRATIVE: CASE EVENT DATE: 20200506
